FAERS Safety Report 9670927 (Version 1)
Quarter: 2013Q4

REPORT INFORMATION
  Report Type: Report from Study
  Country: IL (occurrence: IL)
  Receive Date: 20131106
  Receipt Date: 20131106
  Transmission Date: 20140711
  Serious: Yes (Hospitalization)
  Sender: FDA-Public Use
  Company Number: PHHY2013IL125444

PATIENT
  Age: 77 Year
  Sex: Male

DRUGS (2)
  1. SANDOSTATIN LAR [Suspect]
     Indication: CARCINOID TUMOUR
     Dosage: 30 MG EVERY 4 WEEKS
     Dates: start: 20120101
  2. SANDOSTATIN LAR [Suspect]
     Dosage: 30 MG, 30 MG EVERY 4 WEEKS
     Dates: start: 20131103

REACTIONS (1)
  - Urinary tract infection [Unknown]
